FAERS Safety Report 9379008 (Version 2)
Quarter: 2013Q1

REPORT INFORMATION
  Report Type: Spontaneous
  Country: JP (occurrence: None)
  Receive Date: 20130122
  Receipt Date: 20130211
  Transmission Date: 20140127
  Serious: Yes (Death)
  Sender: FDA-Public Use
  Company Number: 2013S1000015

PATIENT
  Age: 87 Year
  Sex: Male

DRUGS (6)
  1. LIVALO (PITAVASTATIN) TABLETS 2 MG [Suspect]
     Indication: HYPERCHOLESTEROLAEMIA
     Route: 048
     Dates: end: 20121123
  2. UNASYN [Suspect]
     Indication: PNEUMONIA
     Route: 042
     Dates: start: 20121113, end: 20121115
  3. GASTER [Suspect]
     Indication: GASTRITIS
     Route: 048
     Dates: start: 20121113, end: 20121123
  4. FINIBAX [Suspect]
     Indication: PNEUMONIA
     Route: 042
     Dates: start: 20111115, end: 20121124
  5. JANUVIA (SITAGLIPTIN PHOSPHATE) [Suspect]
     Indication: DIABETES MELLITUS
     Dosage: 50 MG 1X PO
     Route: 048
     Dates: start: 20121117, end: 20121124
  6. PRODIF [Suspect]
     Indication: PULMONARY MYCOSIS
     Dosage: 800 MG; 1X;IV   19NOV-2012- 20-NOV-2012?400MG;1X;IV     21-NOV-2012-26-NOV-2012
     Route: 042
     Dates: start: 20121119, end: 20121120

REACTIONS (4)
  - Interstitial lung disease [None]
  - Ventricular tachycardia [None]
  - Pulmonary mycosis [None]
  - Cardiopulmonary failure [None]
